FAERS Safety Report 5615113-6 (Version None)
Quarter: 2008Q1

REPORT INFORMATION
  Report Type: 
  Country: None (occurrence: None)
  Receive Date: 20080206
  Receipt Date: 20070521
  Transmission Date: 20080703
  Serious: No
  Sender: FDA-Public Use
  Company Number: A0652122A

PATIENT
  Age: 38 Year
  Sex: Male

DRUGS (2)
  1. ARIXTRA [Suspect]
     Route: 058
     Dates: start: 20070517
  2. HALDOL [Concomitant]

REACTIONS (1)
  - HAEMATOMA [None]
